FAERS Safety Report 6262376-2 (Version None)
Quarter: 2009Q3

REPORT INFORMATION
  Report Type: 
  Country: None (occurrence: None)
  Receive Date: 20090709
  Receipt Date: 20090706
  Transmission Date: 20100115
  Serious: Yes (Disabling, Other)
  Sender: FDA-Public Use
  Company Number: US-ALLERGAN-0909472US

PATIENT
  Sex: Male

DRUGS (1)
  1. COMBIGAN [Suspect]
     Indication: GLAUCOMA
     Dosage: UNK, UNKNOWN
     Route: 047

REACTIONS (4)
  - CONJUNCTIVAL OEDEMA [None]
  - DOCUMENTED HYPERSENSITIVITY TO ADMINISTERED DRUG [None]
  - EYELID FUNCTION DISORDER [None]
  - VISUAL IMPAIRMENT [None]
